FAERS Safety Report 9825660 (Version 1)
Quarter: 2013Q4

REPORT INFORMATION
  Report Type: Spontaneous
  Country: US (occurrence: None)
  Receive Date: 20131101
  Receipt Date: 20131101
  Transmission Date: 20140711
  Serious: Yes (Other)
  Sender: FDA-Public Use
  Company Number: ALL1-2013-05514

PATIENT
  Age: 12 Year
  Sex: Male
  Weight: 52.2 kg

DRUGS (3)
  1. INTUNIV [Suspect]
     Indication: ATTENTION DEFICIT/HYPERACTIVITY DISORDER
     Dosage: 1 MG, 1X/DAY:QD, ORAL
     Route: 048
     Dates: start: 20130809, end: 201308
  2. DAYTANA (METHYLPHENIDATE) [Concomitant]
  3. FACALIN (DEXMETHYLPHENIDATE HYDROCHLORIDE)? [Concomitant]

REACTIONS (5)
  - Loss of consciousness [None]
  - Mouth haemorrhage [None]
  - Epistaxis [None]
  - Dizziness [None]
  - Incorrect dose administered [None]
